FAERS Safety Report 14756148 (Version 1)
Quarter: 2018Q2

REPORT INFORMATION
  Report Type: Spontaneous
  Country: US (occurrence: US)
  Receive Date: 20180413
  Receipt Date: 20180413
  Transmission Date: 20180711
  Serious: No
  Sender: FDA-Public Use
  Company Number: US-BION-006064

PATIENT
  Age: 80 Year
  Sex: Female
  Weight: 91 kg

DRUGS (1)
  1. ALEVE [Suspect]
     Active Substance: NAPROXEN SODIUM
     Indication: BACK PAIN
     Dosage: 2 LIQUID GELS AM, 1 LIQUID GEL PM
     Route: 048
     Dates: start: 20170201, end: 20170217

REACTIONS (6)
  - Incorrect dose administered [Not Recovered/Not Resolved]
  - Abnormal faeces [Not Recovered/Not Resolved]
  - Diarrhoea [Not Recovered/Not Resolved]
  - Drug ineffective [Not Recovered/Not Resolved]
  - Faeces soft [Not Recovered/Not Resolved]
  - Incorrect drug administration duration [Not Recovered/Not Resolved]

NARRATIVE: CASE EVENT DATE: 20170201
